FAERS Safety Report 5394844-X (Version None)
Quarter: 2007Q3

REPORT INFORMATION
  Report Type: 
  Country: None (occurrence: None)
  Receive Date: 20070720
  Receipt Date: 20070710
  Transmission Date: 20080115
  Serious: Yes (Hospitalization)
  Sender: FDA-Public Use
  Company Number: FABR-12017

PATIENT
  Age: 34 Year
  Sex: Male

DRUGS (14)
  1. FABRAZYME [Suspect]
     Indication: FABRY'S DISEASE
     Dosage: 70 MG Q2WKS IV
     Route: 042
     Dates: start: 20040501
  2. LANTUS [Concomitant]
  3. NOVOLOG [Concomitant]
  4. PLAVIX [Concomitant]
  5. LOPRESSOR [Concomitant]
  6. PRILOSEC [Concomitant]
  7. REGLAN [Concomitant]
  8. ZOCOR [Concomitant]
  9. LISINOPRIL [Concomitant]
  10. PERCOCET [Concomitant]
  11. AMBIEN [Concomitant]
  12. BENADRYL [Concomitant]
  13. ZOFRAN [Concomitant]
  14. DEMEROL [Concomitant]

REACTIONS (10)
  - BLOOD CHLORIDE DECREASED [None]
  - BLOOD PRESSURE DECREASED [None]
  - BLOOD SODIUM INCREASED [None]
  - CEREBROVASCULAR ACCIDENT [None]
  - DIABETIC KETOACIDOSIS [None]
  - HEART RATE DECREASED [None]
  - HYPERGLYCAEMIA [None]
  - MENTAL STATUS CHANGES [None]
  - METABOLIC ENCEPHALOPATHY [None]
  - OVERDOSE [None]
